FAERS Safety Report 9421866 (Version 9)
Quarter: 2019Q1

REPORT INFORMATION
  Report Type: Report from Study
  Country: CA (occurrence: CA)
  Receive Date: 20130726
  Receipt Date: 20190122
  Transmission Date: 20190418
  Serious: Yes (Hospitalization, Other)
  Sender: FDA-Public Use
  Company Number: CA-ROCHE-1225480

PATIENT
  Age: 63 Year
  Sex: Female
  Weight: 75.7 kg

DRUGS (24)
  1. METHOTREXATE. [Concomitant]
     Active Substance: METHOTREXATE
  2. DIPHENHYDRAMINE HCL [Concomitant]
     Active Substance: DIPHENHYDRAMINE HYDROCHLORIDE
     Indication: PREMEDICATION
     Dosage: QD
     Route: 048
     Dates: start: 20120627
  3. METHYLPREDNISOLONE. [Concomitant]
     Active Substance: METHYLPREDNISOLONE
     Route: 042
     Dates: start: 20130506
  4. GARAMYCIN EYE DROPS [Concomitant]
  5. CLOTRIMADERM [Concomitant]
  6. METHYLPREDNISOLONE. [Concomitant]
     Active Substance: METHYLPREDNISOLONE
     Route: 042
     Dates: start: 20130823
  7. GABAPENTIN. [Concomitant]
     Active Substance: GABAPENTIN
  8. RITUXAN [Suspect]
     Active Substance: RITUXIMAB
     Indication: RHEUMATOID ARTHRITIS
     Dosage: MOST RECENT DOSE ON 23/AUG/2013
     Route: 042
     Dates: start: 20120611
  9. RITUXAN [Suspect]
     Active Substance: RITUXIMAB
     Route: 042
     Dates: start: 20130521
  10. VITAMIN B12 [Concomitant]
     Active Substance: CYANOCOBALAMIN
  11. SOFRAMYCIN EYE/EAR [Concomitant]
  12. RISEDRONATE [Concomitant]
     Active Substance: RISEDRONATE SODIUM
  13. HYDROMORPH CONTIN [Concomitant]
     Active Substance: HYDROMORPHONE
  14. ACETAMINOPHEN. [Concomitant]
     Active Substance: ACETAMINOPHEN
     Indication: PREMEDICATION
     Dosage: QD
     Route: 048
     Dates: start: 20120627
  15. METHYLPREDNISOLONE. [Concomitant]
     Active Substance: METHYLPREDNISOLONE
     Indication: PREMEDICATION
     Dosage: QD
     Route: 042
     Dates: start: 20120627, end: 20130627
  16. CITALOPRAM [Concomitant]
     Active Substance: CITALOPRAM HYDROBROMIDE
  17. LORAZEPAM. [Concomitant]
     Active Substance: LORAZEPAM
  18. FOLIC ACID. [Concomitant]
     Active Substance: FOLIC ACID
  19. FLOVENT [Concomitant]
     Active Substance: FLUTICASONE PROPIONATE
  20. CLINDAMYCIN. [Suspect]
     Active Substance: CLINDAMYCIN
     Indication: GINGIVITIS
     Dosage: FOR 10 DAYS
     Route: 048
     Dates: start: 20130828
  21. BUDESONIDE. [Concomitant]
     Active Substance: BUDESONIDE
  22. RABEPRAZOLE [Concomitant]
     Active Substance: RABEPRAZOLE
  23. COUMADIN [Concomitant]
     Active Substance: WARFARIN SODIUM
  24. HYDROMORPHONE [Concomitant]
     Active Substance: HYDROMORPHONE

REACTIONS (26)
  - Musculoskeletal pain [Not Recovered/Not Resolved]
  - Hypotension [Unknown]
  - Gait disturbance [Not Recovered/Not Resolved]
  - Pain in extremity [Unknown]
  - Back pain [Unknown]
  - Cellulitis [Unknown]
  - Limb mass [Not Recovered/Not Resolved]
  - Scoliosis [Not Recovered/Not Resolved]
  - Osteoarthritis [Not Recovered/Not Resolved]
  - Arthralgia [Not Recovered/Not Resolved]
  - Feeling hot [Not Recovered/Not Resolved]
  - Groin pain [Not Recovered/Not Resolved]
  - Bone density abnormal [Not Recovered/Not Resolved]
  - Arthralgia [Not Recovered/Not Resolved]
  - Arthralgia [Not Recovered/Not Resolved]
  - Nausea [Unknown]
  - Diarrhoea [Unknown]
  - Hand deformity [Recovering/Resolving]
  - Breast mass [Not Recovered/Not Resolved]
  - Inflammation [Not Recovered/Not Resolved]
  - Pain [Not Recovered/Not Resolved]
  - Joint swelling [Not Recovered/Not Resolved]
  - Gingivitis [Recovering/Resolving]
  - Bone pain [Unknown]
  - Breast pain [Not Recovered/Not Resolved]
  - Atlantoaxial instability [Unknown]

NARRATIVE: CASE EVENT DATE: 2013
